FAERS Safety Report 9885766 (Version 2)
Quarter: 2014Q1

REPORT INFORMATION
  Report Type: Spontaneous
  Country: GB (occurrence: GB)
  Receive Date: 20140210
  Receipt Date: 20140326
  Transmission Date: 20141002
  Serious: Yes (Death, Other)
  Sender: FDA-Public Use
  Company Number: GB-SA-2013SA108062

PATIENT
  Age: 83 Year
  Sex: Female
  Weight: 50.6 kg

DRUGS (23)
  1. CLOPIDOGREL BISULFATE [Suspect]
     Indication: CAROTID ARTERY STENOSIS
     Route: 048
     Dates: start: 20130415, end: 20130503
  2. PRADAXA [Suspect]
     Indication: EMBOLIC STROKE
     Route: 048
     Dates: start: 20130419, end: 20130503
  3. LAXIDO [Concomitant]
  4. ATORVASTATIN [Concomitant]
  5. LANSOPRAZOLE [Concomitant]
  6. MAGNESIUM GLYCEROPHOSPHATE [Concomitant]
  7. SODIUM CITRATE/SODIUM LAURYL SULFOACETATE [Concomitant]
  8. RANITIDINE [Concomitant]
  9. OMEPRAZOLE [Concomitant]
     Route: 042
  10. SODIUM PHOSPHATE MONOBASIC (ANHYDRATE)/POTASSIUM BICARBONATE/SODIUM BICARBONATE [Concomitant]
     Route: 054
  11. CYCLIZINE [Concomitant]
  12. TOLTERODINE [Concomitant]
  13. LACTULOSE [Concomitant]
  14. RAMIPRIL [Concomitant]
  15. PREDNISOLONE [Concomitant]
  16. CITALOPRAM [Concomitant]
  17. SIMVASTATIN [Concomitant]
  18. ADCAL-D3 [Concomitant]
  19. ALENDRONATE [Concomitant]
  20. TRAMADOL [Concomitant]
  21. BENDROFLUMETHIAZIDE [Concomitant]
  22. AMLODIPINE [Concomitant]
  23. TRIMETHOPRIM [Concomitant]

REACTIONS (2)
  - Sepsis [Fatal]
  - Gastrointestinal haemorrhage [Fatal]
